FAERS Safety Report 15796476 (Version 2)
Quarter: 2019Q1

REPORT INFORMATION
  Report Type: Report from Study
  Country: CO (occurrence: CO)
  Receive Date: 20190108
  Receipt Date: 20190122
  Transmission Date: 20190417
  Serious: Yes (Other)
  Sender: FDA-Public Use
  Company Number: CO-ROCHE-2240352

PATIENT
  Sex: Female

DRUGS (1)
  1. MABTHERA [Suspect]
     Active Substance: RITUXIMAB
     Indication: RHEUMATOID ARTHRITIS
     Route: 065

REACTIONS (6)
  - Upper limb fracture [Unknown]
  - Lower limb fracture [Unknown]
  - Hypoaesthesia [Unknown]
  - Spinal disorder [Unknown]
  - Malaise [Unknown]
  - Fall [Unknown]
